FAERS Safety Report 5178983-4 (Version None)
Quarter: 2006Q4

REPORT INFORMATION
  Report Type: 
  Country: None (occurrence: None)
  Receive Date: 20061219
  Receipt Date: 20061211
  Transmission Date: 20070319
  Serious: Yes (Other)
  Sender: FDA-Public Use
  Company Number: GB-BRISTOL-MYERS SQUIBB COMPANY-13607882

PATIENT
  Age: 59 Year
  Sex: Male

DRUGS (3)
  1. DIDANOSINE [Suspect]
     Indication: HIV INFECTION
     Dates: start: 19970101, end: 20000106
  2. STAVUDINE [Suspect]
     Indication: HIV INFECTION
     Dates: start: 19970101, end: 20000106
  3. NEVIRAPINE [Suspect]
     Indication: HIV INFECTION
     Dates: start: 19970101, end: 20000106

REACTIONS (3)
  - LIPODYSTROPHY ACQUIRED [None]
  - METASTATIC NEOPLASM [None]
  - PROSTATE CANCER [None]
